FAERS Safety Report 8403894 (Version 7)
Quarter: 2013Q2

REPORT INFORMATION
  Report Type: Report from Study
  Country: ES (occurrence: ES)
  Receive Date: 20120214
  Receipt Date: 20130417
  Transmission Date: 20140414
  Serious: Yes (Death, Life-Threatening, Hospitalization, Disabling, Other)
  Sender: FDA-Public Use
  Company Number: ES-BIOGENIDEC-2012BI004235

PATIENT
  Age: 53 Year
  Sex: Male
  Weight: 75 kg

DRUGS (10)
  1. TYSABRI [Suspect]
     Indication: MULTIPLE SCLEROSIS
     Route: 042
     Dates: start: 20090416, end: 20111202
  2. DEXAMETHASONE [Concomitant]
     Route: 048
     Dates: start: 20120131
  3. FUROSEMIDE [Concomitant]
     Route: 048
     Dates: start: 20120131
  4. OMEPRAZOL [Concomitant]
     Route: 048
     Dates: start: 20120131
  5. PARACETAMOL [Concomitant]
     Route: 048
     Dates: start: 20120131
  6. LORAZEPAM [Concomitant]
     Route: 048
     Dates: start: 20120131
  7. CEFTAZIDIME [Concomitant]
  8. VANCOMYCINE [Concomitant]
  9. LEVETIRACETAM [Concomitant]
  10. METAMIZOL [Concomitant]

REACTIONS (3)
  - Glioblastoma [Fatal]
  - Hydrocephalus [Fatal]
  - Delirium [Fatal]
